FAERS Safety Report 6167853-0 (Version None)
Quarter: 2009Q2

REPORT INFORMATION
  Report Type: 
  Country: None (occurrence: None)
  Receive Date: 20090423
  Receipt Date: 20090411
  Transmission Date: 20091009
  Serious: Yes (Other)
  Sender: FDA-Public Use
  Company Number: 1000005869

PATIENT
  Age: 52 Year
  Sex: Female

DRUGS (3)
  1. MEMANTINE HCL [Suspect]
     Dosage: 10 MG (10 MG, ONCE), ORAL
     Route: 048
     Dates: start: 20090411, end: 20090411
  2. CYMBALTA [Suspect]
     Dosage: 60 MG (60 MG, ONCE), ORAL
     Route: 048
     Dates: start: 20090411, end: 20090411
  3. RIVASTIGMINE (6 MILLIGRAM, TABLETS) [Suspect]
     Dosage: 6 MG (6 MG, ONCE), ORAL
     Route: 048
     Dates: start: 20090411, end: 20090411

REACTIONS (9)
  - ABDOMINAL DISCOMFORT [None]
  - ACCIDENTAL EXPOSURE [None]
  - CARDIOVASCULAR INSUFFICIENCY [None]
  - CONFUSIONAL STATE [None]
  - DIARRHOEA [None]
  - DRUG INTERACTION [None]
  - GENERAL PHYSICAL HEALTH DETERIORATION [None]
  - NAUSEA [None]
  - VOMITING [None]
